FAERS Safety Report 18695044 (Version 2)
Quarter: 2021Q1

REPORT INFORMATION
  Report Type: Spontaneous
  Country: DE (occurrence: DE)
  Receive Date: 20210104
  Receipt Date: 20210126
  Transmission Date: 20210419
  Serious: Yes (Hospitalization)
  Sender: FDA-Public Use
  Company Number: DE-DRREDDYS-GER/GER/20/0130506

PATIENT
  Age: 26 Year
  Sex: Male
  Weight: 90 kg

DRUGS (5)
  1. AERIUS (DESLORATADINE) [Concomitant]
     Active Substance: DESLORATADINE
     Indication: PRODUCT USED FOR UNKNOWN INDICATION
     Dosage: 0?0?1
  2. L?THYROXIN 125 [Concomitant]
     Indication: GOITRE
  3. METOPROLOL. [Suspect]
     Active Substance: METOPROLOL
     Indication: HYPERTENSION
  4. METOPROLOL. [Suspect]
     Active Substance: METOPROLOL
     Indication: HYPERKINETIC HEART SYNDROME
     Dosage: 1/2?0?1/2
     Route: 048
     Dates: start: 199207
  5. L?THYROXIN 125 [Concomitant]
     Indication: THYROID MASS
     Dosage: 1?0?0
     Dates: start: 2002

REACTIONS (2)
  - Palatal oedema [Recovered/Resolved]
  - Hereditary angioedema [Recovered/Resolved]

NARRATIVE: CASE EVENT DATE: 2002
